FAERS Safety Report 5072069-5 (Version None)
Quarter: 2006Q3

REPORT INFORMATION
  Report Type: 
  Country: None (occurrence: None)
  Receive Date: 20060807
  Receipt Date: 20060801
  Transmission Date: 20061208
  Serious: Yes (Hospitalization)
  Sender: FDA-Public Use
  Company Number: PHRM2006FR02239

PATIENT
  Age: 70 Year
  Sex: Male

DRUGS (4)
  1. TEGRETOL [Suspect]
     Dosage: 300 MG PER DAY
     Route: 048
     Dates: start: 20060423, end: 20060523
  2. PRAZEPAM [Concomitant]
     Dosage: 0.5 DF PER DAY
     Route: 048
     Dates: start: 20060423
  3. VASTAREL [Concomitant]
     Dosage: 2 DF DAILY
     Route: 048
     Dates: start: 20060520
  4. ASPIRIN [Concomitant]
     Route: 048
     Dates: start: 20060520

REACTIONS (4)
  - AGRANULOCYTOSIS [None]
  - MENINGORADICULITIS [None]
  - NEUTROPHIL COUNT DECREASED [None]
  - WHITE BLOOD CELL COUNT DECREASED [None]
